FAERS Safety Report 6310880-0 (Version None)
Quarter: 2009Q3

REPORT INFORMATION
  Report Type: 
  Country: None (occurrence: None)
  Receive Date: 20090812
  Receipt Date: 20090731
  Transmission Date: 20100115
  Serious: Yes (Hospitalization)
  Sender: FDA-Public Use
  Company Number: 20090313

PATIENT
  Age: 30 Year
  Sex: Female

DRUGS (6)
  1. VENOFER [Suspect]
     Indication: IRON DEFICIENCY ANAEMIA
     Dosage: 300 MG INTRAVENOUS DRIP
     Route: 041
     Dates: start: 20090630, end: 20090630
  2. LOVENOX [Concomitant]
  3. NAROPIN [Concomitant]
  4. SUFENTA PRESERVATIVE FREE [Concomitant]
  5. DAFALGAN [Concomitant]
  6. NIFLURIL [Concomitant]

REACTIONS (2)
  - INJECTION SITE THROMBOSIS [None]
  - THROMBOPHLEBITIS SUPERFICIAL [None]
